FAERS Safety Report 7379917-4 (Version None)
Quarter: 2011Q1

REPORT INFORMATION
  Report Type: 
  Country: None (occurrence: None)
  Receive Date: 20110324
  Receipt Date: 20110324
  Transmission Date: 20110831
  Serious: Yes (Death)
  Sender: FDA-Public Use
  Company Number: None

PATIENT
  Sex: Male

DRUGS (11)
  1. SIMVASTATIN [Concomitant]
  2. ASPIRIN [Concomitant]
  3. ALLOPURINOL [Concomitant]
  4. SERTRALINE HYDROCHLORIDE [Concomitant]
  5. FINASTERIDE [Concomitant]
  6. ATENOLOL [Concomitant]
  7. ADVAIR HFA [Concomitant]
  8. RITUXAN [Concomitant]
  9. REVLIMID [Suspect]
     Indication: MANTLE CELL LYMPHOMA
     Dosage: REVLIMID 25MG EVERY DAY X 21 DAYS ORAL
     Route: 048
     Dates: start: 20110128
  10. NEUPOGEN [Concomitant]
  11. QUETIAPINE [Concomitant]

REACTIONS (1)
  - NEUTROPENIA [None]
